FAERS Safety Report 9989219 (Version 1)
Quarter: 2014Q1

REPORT INFORMATION
  Report Type: Spontaneous
  Country: US (occurrence: ES)
  Receive Date: 20140310
  Receipt Date: 20140310
  Transmission Date: 20141002
  Serious: Yes (Hospitalization)
  Sender: FDA-Public Use
  Company Number: ES-FRI-1000060295

PATIENT
  Age: 55 Year
  Sex: Male
  Weight: 87 kg

DRUGS (5)
  1. ROFLUMILAST [Suspect]
     Indication: CHRONIC OBSTRUCTIVE PULMONARY DISEASE
     Dosage: 250 MCG
     Route: 048
     Dates: start: 20130123, end: 201312
  2. ROFLUMILAST [Suspect]
     Indication: CHRONIC OBSTRUCTIVE PULMONARY DISEASE
     Dosage: 500 MCG
     Route: 048
     Dates: start: 201401
  3. SPIRIVA [Concomitant]
     Dates: start: 2009
  4. VENTOLIN [Concomitant]
     Dates: start: 2005
  5. SERETIDE [Concomitant]
     Dates: start: 2009

REACTIONS (6)
  - Chronic obstructive pulmonary disease [Recovered/Resolved]
  - Nasopharyngitis [Unknown]
  - Headache [Not Recovered/Not Resolved]
  - Insomnia [Not Recovered/Not Resolved]
  - Muscle strain [Unknown]
  - Off label use [Recovered/Resolved]
